FAERS Safety Report 8018284-X (Version None)
Quarter: 2012Q1

REPORT INFORMATION
  Report Type: 
  Country: None (occurrence: None)
  Receive Date: 20120103
  Receipt Date: 20111230
  Transmission Date: 20120608
  Serious: Yes (Other)
  Sender: FDA-Public Use
  Company Number: CN-BAYER-2012-000005

PATIENT
  Age: 58 Year
  Sex: Male

DRUGS (4)
  1. VALSARTAN [Concomitant]
  2. ASPIRIN [Suspect]
     Indication: PLATELET AGGREGATION INHIBITION
     Dosage: UNK
     Dates: start: 20110401
  3. TALCOM [Concomitant]
     Dosage: 3 DF, QD
     Dates: start: 20110401
  4. ROSUVASTATIN [Concomitant]

REACTIONS (4)
  - FAECES DISCOLOURED [None]
  - ABDOMINAL PAIN UPPER [None]
  - HAEMATOCHEZIA [None]
  - VISION BLURRED [None]
